FAERS Safety Report 5402025-6 (Version None)
Quarter: 2007Q3

REPORT INFORMATION
  Report Type: 
  Country: None (occurrence: None)
  Receive Date: 20070726
  Receipt Date: 20070713
  Transmission Date: 20080115
  Serious: Yes (Other)
  Sender: FDA-Public Use
  Company Number: ACO_00364_2007

PATIENT
  Sex: Male

DRUGS (4)
  1. TERNELIN (TERNELIN - TIZANIDINE HYDROCHLORIDE) [Suspect]
     Indication: DRUG USE FOR UNKNOWN INDICATION
     Dosage: (3 MG QD ORAL)
     Route: 048
  2. PRIMPERAN INJ [Concomitant]
  3. MARZULENE S [Concomitant]
  4. SELBEX [Concomitant]

REACTIONS (1)
  - INAPPROPRIATE ANTIDIURETIC HORMONE SECRETION [None]
